FAERS Safety Report 25790776 (Version 2)
Quarter: 2025Q3

REPORT INFORMATION
  Report Type: Spontaneous
  Country: US (occurrence: US)
  Receive Date: 20250911
  Receipt Date: 20250912
  Transmission Date: 20251020
  Serious: No
  Sender: PFIZER
  Company Number: US-PFIZER INC-PV202500109004

PATIENT
  Age: 72 Year
  Sex: Female

DRUGS (2)
  1. TUKYSA [Interacting]
     Active Substance: TUCATINIB
     Dosage: 300 MG, 2X/DAY (2 WEEKS ON, 1 WEEK OFF)
  2. TOLVAPTAN [Interacting]
     Active Substance: TOLVAPTAN

REACTIONS (2)
  - Drug interaction [Unknown]
  - Off label use [Unknown]
